FAERS Safety Report 15695964 (Version 1)
Quarter: 2018Q4

REPORT INFORMATION
  Report Type: Spontaneous
  Country: CA (occurrence: CA)
  Receive Date: 20181206
  Receipt Date: 20181206
  Transmission Date: 20190205
  Serious: Yes (Death, Other)
  Sender: FDA-Public Use
  Company Number: CA-IMPAX LABORATORIES, LLC-2018-IPXL-03970

PATIENT
  Age: 62 Year
  Sex: Male

DRUGS (11)
  1. VANCOMYCIN [Concomitant]
     Active Substance: VANCOMYCIN
     Indication: PRODUCT USED FOR UNKNOWN INDICATION
     Dosage: UNK
     Route: 065
  2. ALBENZA [Suspect]
     Active Substance: ALBENDAZOLE
     Dosage: 400 MILLIGRAM, VIA NASOGASTRIC TUBE AT 8 AND 21 HOURS, FROM DAT 11-26
  3. IVERMECTIN. [Suspect]
     Active Substance: IVERMECTIN
     Dosage: 30 MILLIGRAM, DAILY, 353 ?G/KG, AT 20 HOURS, FROM DAYS 9-10
     Route: 030
  4. VASOPRESSIN. [Concomitant]
     Active Substance: VASOPRESSIN
     Indication: PRODUCT USED FOR UNKNOWN INDICATION
     Dosage: UNK
     Route: 065
  5. ALBENZA [Suspect]
     Active Substance: ALBENDAZOLE
     Indication: STRONGYLOIDIASIS
     Dosage: 400 MILLIGRAM, DAILY, 16 HOURLY VIA NASOGASTRIC TUBE, AT DAYS 9-10
  6. MEROPENEM. [Concomitant]
     Active Substance: MEROPENEM
     Indication: PRODUCT USED FOR UNKNOWN INDICATION
     Dosage: UNK
     Route: 065
  7. NOREPINEPHRINE. [Concomitant]
     Active Substance: NOREPINEPHRINE
     Indication: PRODUCT USED FOR UNKNOWN INDICATION
     Dosage: UNK
     Route: 065
  8. HYDROCORTISONE. [Suspect]
     Active Substance: HYDROCORTISONE
     Indication: STRONGYLOIDIASIS
     Dosage: 50 MILLIGRAM, QID
     Route: 042
  9. IVERMECTIN. [Suspect]
     Active Substance: IVERMECTIN
     Dosage: 17 MILLIGRAM, AT 20 HOURS, FROM DAYS 11-26
     Route: 058
  10. IVERMECTIN. [Suspect]
     Active Substance: IVERMECTIN
     Indication: STRONGYLOIDIASIS
     Dosage: 15 MILLIGRAM VIA NASOGASTRIC TUBE AT 20 HOURS, FROM DAY 9-10
  11. METHYLPREDNISOLONE. [Suspect]
     Active Substance: METHYLPREDNISOLONE
     Indication: PNEUMONIA
     Dosage: 1 GRAM, DAILY
     Route: 042

REACTIONS (3)
  - Strongyloidiasis [Fatal]
  - Drug level decreased [Unknown]
  - Drug ineffective for unapproved indication [Unknown]
